FAERS Safety Report 22590433 (Version 1)
Quarter: 2023Q2

REPORT INFORMATION
  Report Type: Report from Study
  Country: US (occurrence: US)
  Receive Date: 20230612
  Receipt Date: 20230612
  Transmission Date: 20230722
  Serious: Yes (Death, Other)
  Sender: FDA-Public Use
  Company Number: US-GILEAD-2023-0632121

PATIENT
  Sex: Male

DRUGS (22)
  1. AZTREONAM LYSINE [Suspect]
     Active Substance: AZTREONAM LYSINE
     Indication: Pseudomonas infection
     Dosage: 75 MG, TID, RECONSTITUTE WITH 1ML SUPPLIED DILUENT + NEBULIZE 3 TIMES DAILY FOR 28 DAYS ON, 28 DAYS
     Route: 055
  2. CLONAZEPAM [Concomitant]
     Active Substance: CLONAZEPAM
  3. POTASSIUM [Concomitant]
     Active Substance: POTASSIUM
  4. PHENOBARBITAL [Concomitant]
     Active Substance: PHENOBARBITAL
  5. CITRIC ACID [Concomitant]
     Active Substance: CITRIC ACID MONOHYDRATE
  6. DISODIUM HYDROGEN CITRATE [Concomitant]
     Active Substance: DISODIUM HYDROGEN CITRATE
  7. DIAZEPAM [Concomitant]
     Active Substance: DIAZEPAM
  8. BACTRIM DS [Concomitant]
     Active Substance: SULFAMETHOXAZOLE\TRIMETHOPRIM
  9. VIMPAT [Concomitant]
     Active Substance: LACOSAMIDE
  10. BUMEX [Concomitant]
     Active Substance: BUMETANIDE
  11. MIDAZOLAM [Concomitant]
     Active Substance: MIDAZOLAM
  12. IRON [Concomitant]
     Active Substance: IRON
  13. FOLIC ACID [Concomitant]
     Active Substance: FOLIC ACID
  14. VALPROIC ACID [Concomitant]
     Active Substance: VALPROIC ACID
  15. TOPIRAMATE [Concomitant]
     Active Substance: TOPIRAMATE
  16. NEOMYCIN SULFATE [Concomitant]
     Active Substance: NEOMYCIN SULFATE
  17. SPIRONOLACTONE [Concomitant]
     Active Substance: SPIRONOLACTONE
  18. PULMICORT TURBUHALER [Concomitant]
     Active Substance: BUDESONIDE
  19. KEPPRA [Concomitant]
     Active Substance: LEVETIRACETAM
  20. PULMOZYME [Concomitant]
     Active Substance: DORNASE ALFA
  21. EPIDIOLEX [Concomitant]
     Active Substance: CANNABIDIOL
  22. TOBRAMYCIN [Concomitant]
     Active Substance: TOBRAMYCIN

REACTIONS (2)
  - Death [Fatal]
  - Off label use [Unknown]
